FAERS Safety Report 11927347 (Version 1)
Quarter: 2016Q1

REPORT INFORMATION
  Report Type: Spontaneous
  Country: US (occurrence: None)
  Receive Date: 20160115
  Receipt Date: 20160115
  Transmission Date: 20160526
  Serious: No
  Sender: FDA-Public Use
  Company Number: None

PATIENT
  Age: 5 Year
  Sex: Male
  Weight: 19.05 kg

DRUGS (5)
  1. OXYBUTYNIN ER 5MG KREMERS URBAN [Suspect]
     Active Substance: OXYBUTYNIN
     Indication: BLADDER SPASM
     Dosage: 1 PILL
     Route: 048
     Dates: start: 20151106
  2. EPIPEN JR [Concomitant]
     Active Substance: EPINEPHRINE
  3. GUMMY VITAMINS [Concomitant]
  4. MELATONIN [Concomitant]
     Active Substance: MELATONIN
  5. ENEMA (SODIUM PHOSPHATE, DIBASIC\SODIUM PHOSPHATE, MONOBASIC) [Concomitant]
     Active Substance: SODIUM PHOSPHATE, DIBASIC\SODIUM PHOSPHATE, MONOBASIC

REACTIONS (2)
  - Dysphemia [None]
  - Dyspnoea [None]

NARRATIVE: CASE EVENT DATE: 20151106
